FAERS Safety Report 9561516 (Version 1)
Quarter: 2013Q3

REPORT INFORMATION
  Report Type: Spontaneous
  Country: US (occurrence: US)
  Receive Date: 20130927
  Receipt Date: 20130927
  Transmission Date: 20140515
  Serious: No
  Sender: FDA-Public Use
  Company Number: US-BIOGENIDEC-2013BI060817

PATIENT
  Age: 45 Year
  Sex: Female

DRUGS (2)
  1. TECFIDERA [Suspect]
     Indication: PRODUCT USED FOR UNKNOWN INDICATION
     Route: 048
  2. NORTRIPTYLINE HCL [Concomitant]

REACTIONS (7)
  - Headache [Unknown]
  - Dysgeusia [Unknown]
  - Flushing [Recovered/Resolved]
  - Rash [Unknown]
  - Nausea [Unknown]
  - Abdominal pain upper [Unknown]
  - Burning sensation [Recovered/Resolved]
